FAERS Safety Report 6060246-6 (Version None)
Quarter: 2009Q1

REPORT INFORMATION
  Report Type: 
  Country: None (occurrence: None)
  Receive Date: 20090129
  Receipt Date: 20090120
  Transmission Date: 20090719
  Serious: Yes (Hospitalization)
  Sender: FDA-Public Use
  Company Number: LTI2009A00019

PATIENT
  Age: 78 Year
  Sex: Male

DRUGS (4)
  1. ACTOS [Suspect]
     Indication: TYPE 1 DIABETES MELLITUS
     Dosage: 15 MG (15 MG, 1 IN 1 D) ORAL YEARS
     Route: 048
     Dates: start: 20050101
  2. LEVEMIR [Concomitant]
  3. NOVOLOG [Concomitant]
  4. METFORMIN HCL [Concomitant]

REACTIONS (3)
  - ANGIOSARCOMA [None]
  - INJECTION SITE MASS [None]
  - WEIGHT DECREASED [None]
